FAERS Safety Report 8005756-7 (Version None)
Quarter: 2011Q4

REPORT INFORMATION
  Report Type: 
  Country: None (occurrence: None)
  Receive Date: 20111223
  Receipt Date: 20111215
  Transmission Date: 20120403
  Serious: Yes (Other)
  Sender: FDA-Public Use
  Company Number: US-SANOFI-AVENTIS-2011SA082542

PATIENT
  Age: 58 Year
  Sex: Female

DRUGS (4)
  1. NOVOLOG [Concomitant]
  2. LANTUS [Suspect]
     Dates: start: 20090101
  3. LANTUS [Suspect]
     Dosage: DOSE:40 UNIT(S)
     Route: 058
     Dates: start: 02010101
  4. LANTUS [Suspect]
     Dosage: DOSE:60 UNIT(S)
     Route: 058
     Dates: start: 20090101, end: 20110101

REACTIONS (3)
  - GASTRIC BYPASS [None]
  - DEVICE MALFUNCTION [None]
  - UNEVALUABLE EVENT [None]
